FAERS Safety Report 13015351 (Version 4)
Quarter: 2017Q2

REPORT INFORMATION
  Report Type: Spontaneous
  Country: US (occurrence: US)
  Receive Date: 20161211
  Receipt Date: 20170418
  Transmission Date: 20170830
  Serious: Yes (Hospitalization)
  Sender: FDA-Public Use
  Company Number: US-TAIHO ONCOLOGY INC-EU-2016-03103

PATIENT
  Age: 78 Year
  Sex: Male
  Weight: 87.62 kg

DRUGS (12)
  1. DILTIAZEM. [Concomitant]
     Active Substance: DILTIAZEM
     Dosage: NI
  2. COMPAZINE [Concomitant]
     Active Substance: PROCHLORPERAZINE MALEATE
     Dosage: NI
  3. LONSURF [Suspect]
     Active Substance: TIPIRACIL HYDROCHLORIDE\TRIFLURIDINE
     Indication: COLON CANCER
     Dosage: CYCLE 1
     Route: 048
     Dates: start: 20161101, end: 20161115
  4. LORAZEPAM. [Concomitant]
     Active Substance: LORAZEPAM
     Dosage: NI
  5. LEVOTHYROXINE. [Concomitant]
     Active Substance: LEVOTHYROXINE
     Dosage: NI
  6. MIRALAX [Concomitant]
     Active Substance: POLYETHYLENE GLYCOL 3350
     Dosage: NI
  7. COLACE [Concomitant]
     Active Substance: DOCUSATE SODIUM
     Dosage: NI
  8. OXYCODONE [Concomitant]
     Active Substance: OXYCODONE
     Dosage: NI
  9. TYLENOL [Concomitant]
     Active Substance: ACETAMINOPHEN
     Dosage: NI
  10. ZOFRAN [Concomitant]
     Active Substance: ONDANSETRON HYDROCHLORIDE
     Dosage: NI
  11. NEUPOGEN [Concomitant]
     Active Substance: FILGRASTIM
     Dosage: NI
  12. CITALOPRAM [Concomitant]
     Active Substance: CITALOPRAM HYDROBROMIDE
     Dosage: NI

REACTIONS (6)
  - Neutropenia [Recovered/Resolved]
  - Urinary tract infection [Unknown]
  - Red blood cell count decreased [Unknown]
  - Thrombocytopenia [Unknown]
  - Anaemia [Recovered/Resolved]
  - White blood cell count decreased [Unknown]

NARRATIVE: CASE EVENT DATE: 20161120
